FAERS Safety Report 12370677 (Version 14)
Quarter: 2020Q2

REPORT INFORMATION
  Report Type: Spontaneous
  Country: CA (occurrence: CA)
  Receive Date: 20160516
  Receipt Date: 20200629
  Transmission Date: 20200713
  Serious: Yes (Hospitalization, Disabling, Other)
  Sender: FDA-Public Use
  Company Number: CA-ROCHE-1756598

PATIENT
  Age: 65 Year
  Sex: Female

DRUGS (52)
  1. ACTEMRA [Suspect]
     Active Substance: TOCILIZUMAB
     Indication: RHEUMATOID ARTHRITIS
     Route: 058
  2. RITUXAN [Suspect]
     Active Substance: RITUXIMAB
     Indication: RHEUMATOID ARTHRITIS
     Route: 042
     Dates: start: 20160216, end: 20160216
  3. RISEDRONATE [Concomitant]
     Active Substance: RISEDRONATE SODIUM
     Route: 065
  4. HYDROXYCHLOROQUINE SULFATE. [Suspect]
     Active Substance: HYDROXYCHLOROQUINE SULFATE
     Route: 065
  5. HYDROXYCHLOROQUINE SULFATE. [Suspect]
     Active Substance: HYDROXYCHLOROQUINE SULFATE
     Route: 065
  6. ACTONEL [Concomitant]
     Active Substance: RISEDRONATE SODIUM
     Route: 065
  7. ERGOCALCIFEROL. [Concomitant]
     Active Substance: ERGOCALCIFEROL
     Route: 065
  8. XELJANZ [Concomitant]
     Active Substance: TOFACITINIB CITRATE
     Indication: RHEUMATOID ARTHRITIS
     Route: 048
  9. APO-LEFLUNOMIDE [Suspect]
     Active Substance: LEFLUNOMIDE
     Indication: RHEUMATOID ARTHRITIS
     Route: 065
  10. HYDROXYCHLOROQUINE [Suspect]
     Active Substance: HYDROXYCHLOROQUINE
     Indication: RHEUMATOID ARTHRITIS
     Route: 065
  11. ALPRAZOLAM. [Concomitant]
     Active Substance: ALPRAZOLAM
     Route: 065
  12. ARAVA [Concomitant]
     Active Substance: LEFLUNOMIDE
     Indication: RHEUMATOID ARTHRITIS
     Route: 065
  13. IRON SUCROSE [Concomitant]
     Active Substance: IRON SUCROSE
     Route: 065
  14. METFORMIN [Concomitant]
     Active Substance: METFORMIN HYDROCHLORIDE
     Route: 065
  15. PREDNISONE. [Concomitant]
     Active Substance: PREDNISONE
     Route: 065
  16. HUMIRA [Suspect]
     Active Substance: ADALIMUMAB
     Indication: RHEUMATOID ARTHRITIS
     Route: 058
     Dates: start: 2010
  17. ORENCIA [Suspect]
     Active Substance: ABATACEPT
     Route: 065
  18. LEFLUNOMIDE. [Suspect]
     Active Substance: LEFLUNOMIDE
     Indication: RHEUMATOID ARTHRITIS
     Route: 048
  19. METHOTREXATE. [Suspect]
     Active Substance: METHOTREXATE
     Route: 065
  20. PREDNISONE. [Concomitant]
     Active Substance: PREDNISONE
     Indication: RHEUMATOID ARTHRITIS
     Route: 065
     Dates: start: 20160511
  21. CELEBREX [Concomitant]
     Active Substance: CELECOXIB
     Route: 065
  22. FOLIC ACID. [Concomitant]
     Active Substance: FOLIC ACID
     Route: 065
  23. MORPHINE SULFATE. [Concomitant]
     Active Substance: MORPHINE SULFATE
     Route: 065
  24. SULFASALAZINE. [Concomitant]
     Active Substance: SULFASALAZINE
     Route: 065
  25. RITUXIMAB. [Suspect]
     Active Substance: RITUXIMAB
     Indication: RHEUMATOID ARTHRITIS
     Dosage: THERAPY DURATION: 365 NOS
     Route: 042
     Dates: start: 20160216
  26. REMICADE [Suspect]
     Active Substance: INFLIXIMAB
     Route: 042
  27. PLAQUENIL [Suspect]
     Active Substance: HYDROXYCHLOROQUINE SULFATE
     Indication: RHEUMATOID ARTHRITIS
     Dosage: END DATE: UNKNOWN
     Route: 048
     Dates: start: 2007
  28. APO-LEFLUNOMIDE [Suspect]
     Active Substance: LEFLUNOMIDE
     Route: 042
     Dates: start: 2015, end: 2016
  29. AMLODIPINE [Concomitant]
     Active Substance: AMLODIPINE BESYLATE
     Route: 065
  30. SIMVASTATIN. [Concomitant]
     Active Substance: SIMVASTATIN
     Route: 065
  31. TELMISARTAN. [Concomitant]
     Active Substance: TELMISARTAN
     Route: 065
  32. ORENCIA [Suspect]
     Active Substance: ABATACEPT
     Indication: RHEUMATOID ARTHRITIS
     Route: 042
  33. REMICADE [Suspect]
     Active Substance: INFLIXIMAB
     Indication: RHEUMATOID ARTHRITIS
     Route: 065
  34. HYDROXYCHLOROQUINE SULFATE. [Suspect]
     Active Substance: HYDROXYCHLOROQUINE SULFATE
     Indication: RHEUMATOID ARTHRITIS
     Route: 065
  35. METHOTREXATE. [Suspect]
     Active Substance: METHOTREXATE
     Route: 065
  36. BISOPROLOL FUMARATE. [Concomitant]
     Active Substance: BISOPROLOL FUMARATE
     Route: 065
  37. ESOMEPRAZOLE. [Concomitant]
     Active Substance: ESOMEPRAZOLE MAGNESIUM
     Indication: GASTRIC DISORDER
     Route: 065
  38. PANTOPRAZOLE [Concomitant]
     Active Substance: PANTOPRAZOLE
     Route: 065
  39. PAROXETINE. [Concomitant]
     Active Substance: PAROXETINE
     Route: 065
  40. PREDNISONE. [Concomitant]
     Active Substance: PREDNISONE
     Indication: RHEUMATOID ARTHRITIS
     Route: 065
  41. SIMPONI [Concomitant]
     Active Substance: GOLIMUMAB
     Route: 058
  42. ENBREL [Suspect]
     Active Substance: ETANERCEPT
     Indication: RHEUMATOID ARTHRITIS
     Dosage: UNKNOWN DOSE AND FREQUENCY
     Route: 058
     Dates: start: 2013, end: 2013
  43. APO-AZATHIOPRINE [Suspect]
     Active Substance: AZATHIOPRINE
     Indication: RHEUMATOID ARTHRITIS
     Route: 065
  44. PREDNISONE. [Concomitant]
     Active Substance: PREDNISONE
     Route: 065
  45. ACETYLSALICYLIC ACID [Concomitant]
     Active Substance: ASPIRIN
     Route: 065
  46. PREDNISONE. [Concomitant]
     Active Substance: PREDNISONE
     Route: 016
  47. METHOTREXATE SODIUM. [Suspect]
     Active Substance: METHOTREXATE SODIUM
     Indication: RHEUMATOID ARTHRITIS
     Dosage: UNKNOWN DOSE AND FREQUENCY, DISCONTINUED
     Route: 065
  48. ENBREL [Suspect]
     Active Substance: ETANERCEPT
     Route: 058
  49. HYDROXYCHLOROQUINE SULFATE. [Suspect]
     Active Substance: HYDROXYCHLOROQUINE SULFATE
     Route: 048
  50. LEFLUNOMIDE. [Suspect]
     Active Substance: LEFLUNOMIDE
     Route: 065
  51. METHOTREXATE. [Suspect]
     Active Substance: METHOTREXATE
     Indication: RHEUMATOID ARTHRITIS
     Route: 065
  52. XELJANZ [Concomitant]
     Active Substance: TOFACITINIB CITRATE
     Indication: RHEUMATOID ARTHRITIS
     Route: 048
     Dates: start: 20160520

REACTIONS (17)
  - Condition aggravated [Not Recovered/Not Resolved]
  - Loss of personal independence in daily activities [Not Recovered/Not Resolved]
  - Contraindicated product administered [Unknown]
  - Pneumonia [Not Recovered/Not Resolved]
  - Prescribed underdose [Unknown]
  - Joint swelling [Not Recovered/Not Resolved]
  - Arthralgia [Not Recovered/Not Resolved]
  - Inflammation [Not Recovered/Not Resolved]
  - Drug ineffective [Unknown]
  - Pulmonary fibrosis [Not Recovered/Not Resolved]
  - Arthropathy [Not Recovered/Not Resolved]
  - Arthritis [Not Recovered/Not Resolved]
  - Treatment failure [Unknown]
  - Hepatic enzyme increased [Not Recovered/Not Resolved]
  - Breath sounds abnormal [Not Recovered/Not Resolved]
  - Rheumatoid arthritis [Not Recovered/Not Resolved]
  - Off label use [Unknown]
